FAERS Safety Report 11636379 (Version 3)
Quarter: 2015Q4

REPORT INFORMATION
  Report Type: Spontaneous
  Country: MX (occurrence: MX)
  Receive Date: 20151016
  Receipt Date: 20151109
  Transmission Date: 20160304
  Serious: Yes (Other)
  Sender: FDA-Public Use
  Company Number: MX-AMGEN-MEXSL2015106814

PATIENT
  Age: 60 Year
  Sex: Male
  Weight: 100 kg

DRUGS (1)
  1. ARANESP [Suspect]
     Active Substance: DARBEPOETIN ALFA
     Indication: ANAEMIA
     Dosage: 30 MUG, Q2WK
     Route: 058
     Dates: start: 20150715, end: 20150817

REACTIONS (5)
  - Tachycardia [Unknown]
  - Hypertensive crisis [Recovered/Resolved]
  - Hypertension [Unknown]
  - Headache [Unknown]
  - Haemodialysis [Unknown]

NARRATIVE: CASE EVENT DATE: 20150715
